FAERS Safety Report 6977172-8 (Version None)
Quarter: 2010Q3

REPORT INFORMATION
  Report Type: 
  Country: None (occurrence: None)
  Receive Date: 20100910
  Receipt Date: 20100901
  Transmission Date: 20110219
  Serious: Yes (Hospitalization)
  Sender: FDA-Public Use
  Company Number: GB-JNJFOC-20100504630

PATIENT
  Age: 19 Year
  Sex: Female

DRUGS (9)
  1. ACETAMINOPHEN [Suspect]
     Route: 048
  2. ACETAMINOPHEN [Suspect]
     Indication: INTENTIONAL OVERDOSE
     Route: 048
  3. AMOXICILLIN [Suspect]
     Indication: INTENTIONAL OVERDOSE
     Route: 048
  4. UNKNOWN MEDICATION [Suspect]
     Indication: INTENTIONAL OVERDOSE
     Route: 048
  5. NYTOL [Suspect]
     Indication: INTENTIONAL OVERDOSE
     Route: 048
  6. PHENYLEPHRINE HCL [Suspect]
     Indication: INTENTIONAL OVERDOSE
     Route: 048
  7. THEOPHYLLINE [Suspect]
     Indication: INTENTIONAL OVERDOSE
     Route: 048
  8. ZOPICLONE [Suspect]
     Indication: INTENTIONAL OVERDOSE
     Route: 048
  9. ALCOHOL [Suspect]
     Indication: INTENTIONAL OVERDOSE

REACTIONS (2)
  - MULTIPLE DRUG OVERDOSE INTENTIONAL [None]
  - RHABDOMYOLYSIS [None]
